FAERS Safety Report 16404359 (Version 1)
Quarter: 2019Q3

REPORT INFORMATION
  Report Type: Spontaneous
  Country: US (occurrence: US)
  Receive Date: 20190606
  Receipt Date: 20190606
  Transmission Date: 20191004
  Serious: Yes (Disabling, Other)
  Sender: FDA-Public Use
  Company Number: None

PATIENT
  Age: 44 Year
  Sex: Female
  Weight: 85.5 kg

DRUGS (10)
  1. XANAX [Concomitant]
     Active Substance: ALPRAZOLAM
  2. TUMS WITH CALCIUM [Concomitant]
  3. TRAZODONE [Concomitant]
     Active Substance: TRAZODONE HYDROCHLORIDE
  4. LEVAQUIN [Suspect]
     Active Substance: LEVOFLOXACIN
     Indication: PULMONARY CONGESTION
     Dosage: ?          QUANTITY:10 TABLET(S);?
     Route: 048
     Dates: start: 20140926, end: 20160411
  5. CALCITROL [CALCITRIOL] [Concomitant]
     Active Substance: CALCITRIOL
  6. OMEPRAZOLE. [Concomitant]
     Active Substance: OMEPRAZOLE
  7. METAPEROLO [Concomitant]
  8. TOPAMAX [Concomitant]
     Active Substance: TOPIRAMATE
  9. LEVOTHYROXINE. [Concomitant]
     Active Substance: LEVOTHYROXINE
  10. PRISTIQ EXTENDED-RELEASE [Concomitant]
     Active Substance: DESVENLAFAXINE SUCCINATE

REACTIONS (6)
  - Ligament rupture [None]
  - Fall [None]
  - Rotator cuff syndrome [None]
  - Muscle rupture [None]
  - Surgical failure [None]
  - Tendon rupture [None]

NARRATIVE: CASE EVENT DATE: 20160301
